FAERS Safety Report 22646388 (Version 3)
Quarter: 2025Q3

REPORT INFORMATION
  Report Type: Report from Study
  Country: KR (occurrence: KR)
  Receive Date: 20230627
  Receipt Date: 20250911
  Transmission Date: 20251021
  Serious: Yes (Hospitalization, Other)
  Sender: TAKEDA
  Company Number: KR-TAKEDA-2023TUS061523

PATIENT
  Age: 19 Year
  Sex: Female
  Weight: 64 kg

DRUGS (7)
  1. VEDOLIZUMAB [Suspect]
     Active Substance: VEDOLIZUMAB
     Indication: Colitis ulcerative
     Dosage: 300 MILLIGRAM
     Dates: start: 20230523
  2. FOLIC ACID [Concomitant]
     Active Substance: FOLIC ACID
     Indication: Mineral supplementation
     Dosage: 1 MILLIGRAM, QD
     Dates: start: 20230320
  3. TRAMADOL HYDROCHLORIDE [Concomitant]
     Active Substance: TRAMADOL HYDROCHLORIDE
  4. PROPACETAMOL HYDROCHLORIDE [Concomitant]
     Active Substance: PROPACETAMOL HYDROCHLORIDE
     Indication: Adverse event
     Dates: start: 20230620, end: 20230620
  5. AVELOX [Concomitant]
     Active Substance: MOXIFLOXACIN HYDROCHLORIDE
     Indication: Adverse event
     Dosage: 400 MILLIGRAM, QD
     Dates: start: 20230621, end: 20230623
  6. SODIUM ALGINATE [Concomitant]
     Active Substance: SODIUM ALGINATE
     Dosage: 20 MILLILITER, TID
     Dates: start: 20230620
  7. Noltec [Concomitant]
     Dosage: 20 MILLIGRAM, QD
     Dates: start: 20230620

REACTIONS (1)
  - Pericardial effusion [Recovered/Resolved]

NARRATIVE: CASE EVENT DATE: 20230618
